FAERS Safety Report 9865565 (Version 2)
Quarter: 2014Q1

REPORT INFORMATION
  Report Type: Spontaneous
  Country: US (occurrence: US)
  Receive Date: 20140203
  Receipt Date: 20140203
  Transmission Date: 20141002
  Serious: No
  Sender: FDA-Public Use
  Company Number: US-ALLERGAN-1305934US

PATIENT
  Sex: Female

DRUGS (3)
  1. RESTASIS [Suspect]
     Indication: DRY EYE
     Dosage: 2 GTT, BID
     Route: 047
  2. PROCRIT                            /00909301/ [Concomitant]
     Indication: ANAEMIA
     Dosage: UNK UNK, Q2WEEKS
  3. LEVOTHYROXINE [Concomitant]
     Indication: HYPOTHYROIDISM
     Dosage: UNK UNK, QD
     Route: 048

REACTIONS (4)
  - Vitreous floaters [Recovering/Resolving]
  - Eye irritation [Recovering/Resolving]
  - Eye pruritus [Recovering/Resolving]
  - Foreign body sensation in eyes [Recovering/Resolving]
